FAERS Safety Report 5360422-1 (Version None)
Quarter: 2007Q2

REPORT INFORMATION
  Report Type: 
  Country: None (occurrence: None)
  Receive Date: 20070612
  Receipt Date: 20070315
  Transmission Date: 20071010
  Serious: Yes (Hospitalization, Other)
  Sender: FDA-Public Use
  Company Number: 2007US000267

PATIENT
  Age: 78 Year
  Sex: Female

DRUGS (6)
  1. VESICARE [Suspect]
     Indication: DRUG USE FOR UNKNOWN INDICATION
     Dosage: 10 MG, ORAL
     Route: 048
     Dates: start: 20070101
  2. ACE INHIBITOR NOS [Concomitant]
  3. TRIMETHOPRIM SULFATE (TRIMETHOPRIM SULFATE) [Concomitant]
  4. NORVASC [Concomitant]
  5. TUBE FEEDINGS [Concomitant]
  6. KLONOPIN [Concomitant]

REACTIONS (1)
  - ENCEPHALITIS VIRAL [None]
